FAERS Safety Report 14568519 (Version 1)
Quarter: 2018Q1

REPORT INFORMATION
  Report Type: Spontaneous
  Country: US (occurrence: US)
  Receive Date: 20180223
  Receipt Date: 20180223
  Transmission Date: 20180509
  Serious: Yes (Other)
  Sender: FDA-Public Use
  Company Number: US-TEVA-2018-US-860599

PATIENT
  Age: 73 Year
  Sex: Female

DRUGS (1)
  1. ESTROPIPATE. [Suspect]
     Active Substance: ESTROPIPATE

REACTIONS (1)
  - Carcinoma in situ of skin [Unknown]
